FAERS Safety Report 6860604-3 (Version None)
Quarter: 2010Q3

REPORT INFORMATION
  Report Type: 
  Country: None (occurrence: None)
  Receive Date: 20100720
  Receipt Date: 20100706
  Transmission Date: 20110219
  Serious: Yes (Other)
  Sender: FDA-Public Use
  Company Number: RU-JNJFOC-HOAFF17475

PATIENT
  Age: 54 Year
  Sex: Female

DRUGS (2)
  1. VERMOX [Suspect]
     Indication: HEPATIC ECHINOCOCCIASIS
     Route: 048
  2. VERMOX [Suspect]
     Indication: PULMONARY ECHINOCOCCIASIS
     Route: 048

REACTIONS (5)
  - AGRANULOCYTOSIS [None]
  - ASTHENIA [None]
  - HYPERAEMIA [None]
  - OROPHARYNGEAL PAIN [None]
  - PYREXIA [None]
